FAERS Safety Report 13940732 (Version 1)
Quarter: 2017Q3

REPORT INFORMATION
  Report Type: Spontaneous
  Country: FR (occurrence: FR)
  Receive Date: 20170906
  Receipt Date: 20170906
  Transmission Date: 20171127
  Serious: Yes (Other)
  Sender: FDA-Public Use
  Company Number: FR-PFIZER INC-2017377346

PATIENT
  Age: 68 Year
  Sex: Male
  Weight: 55 kg

DRUGS (7)
  1. KARDEGIC [Concomitant]
     Active Substance: ASPIRIN LYSINE
     Dosage: 75 MG, 1X/DAY
  2. CRESTOR [Concomitant]
     Active Substance: ROSUVASTATIN CALCIUM
     Dosage: 1 DF, 1X/DAY
  3. STAGID [Concomitant]
     Active Substance: METFORMIN PAMOATE
     Dosage: 1 DF, 3X/DAY
  4. APROVEL [Concomitant]
     Active Substance: IRBESARTAN
     Dosage: 1 DF, 1X/DAY
  5. LEVEMIR [Concomitant]
     Active Substance: INSULIN DETEMIR
     Dosage: 52 OR 54 IU IN THE EVENING
  6. VICTOZA [Concomitant]
     Active Substance: LIRAGLUTIDE
     Dosage: UNK, 1X/DAY
  7. CELEBREX [Suspect]
     Active Substance: CELECOXIB
     Dosage: 2 DF, DAILY
     Route: 048
     Dates: start: 20170711, end: 20170731

REACTIONS (1)
  - Haemorrhage urinary tract [Recovered/Resolved]

NARRATIVE: CASE EVENT DATE: 20170804
